FAERS Safety Report 15471101 (Version 1)
Quarter: 2018Q4

REPORT INFORMATION
  Report Type: Report from Study
  Country: US (occurrence: US)
  Receive Date: 20181006
  Receipt Date: 20181006
  Transmission Date: 20190205
  Serious: No
  Sender: FDA-Public Use
  Company Number: PHEH2018US040976

PATIENT
  Sex: Female

DRUGS (1)
  1. GILENYA [Suspect]
     Active Substance: FINGOLIMOD HYDROCHLORIDE
     Indication: MULTIPLE SCLEROSIS
     Dosage: 0.5 MG, QD
     Route: 048
     Dates: start: 20170930, end: 20180501

REACTIONS (6)
  - Agraphia [Not Recovered/Not Resolved]
  - Fatigue [Recovering/Resolving]
  - Tremor [Recovering/Resolving]
  - Gait disturbance [Unknown]
  - Seasonal allergy [Recovering/Resolving]
  - Hot flush [Recovering/Resolving]
